FAERS Safety Report 25721354 (Version 1)
Quarter: 2025Q3

REPORT INFORMATION
  Report Type: Spontaneous
  Country: US (occurrence: None)
  Receive Date: 20250822
  Receipt Date: 20250822
  Transmission Date: 20251020
  Serious: Yes (Other)
  Sender: FDA-CTU
  Company Number: None

PATIENT
  Age: 66 Year
  Sex: Female
  Weight: 72.45 kg

DRUGS (2)
  1. MINOXIDIL [Suspect]
     Active Substance: MINOXIDIL
     Indication: Alopecia
     Dates: start: 20250512, end: 20250806
  2. MINOXIDIL [Suspect]
     Active Substance: MINOXIDIL
     Dates: start: 20250612, end: 20250820

REACTIONS (6)
  - Hypotension [None]
  - Cough [None]
  - Pyrexia [None]
  - Sinus congestion [None]
  - Heart rate increased [None]
  - Feeling abnormal [None]

NARRATIVE: CASE EVENT DATE: 20250629
